FAERS Safety Report 14222454 (Version 1)
Quarter: 2017Q4

REPORT INFORMATION
  Report Type: Report from Study
  Country: None (occurrence: HU)
  Receive Date: 20171124
  Receipt Date: 20171124
  Transmission Date: 20180321
  Serious: Yes (Other)
  Sender: FDA-Public Use
  Company Number: HU-ABBVIE-17K-076-2171585-00

PATIENT
  Age: 27 Year
  Sex: Female

DRUGS (1)
  1. HUMIRA [Suspect]
     Active Substance: ADALIMUMAB
     Indication: CROHN^S DISEASE
     Route: 058
     Dates: start: 20170628, end: 2017

REACTIONS (2)
  - Liver function test increased [Not Recovered/Not Resolved]
  - Pancreatitis [Unknown]

NARRATIVE: CASE EVENT DATE: 20170920
